FAERS Safety Report 21336623 (Version 2)
Quarter: 2022Q3

REPORT INFORMATION
  Report Type: Report from Study
  Country: US (occurrence: US)
  Receive Date: 20220915
  Receipt Date: 20220920
  Transmission Date: 20221026
  Serious: No
  Sender: FDA-Public Use
  Company Number: US-AGIOS-2208US03105

PATIENT
  Sex: Male

DRUGS (3)
  1. MITAPIVAT [Suspect]
     Active Substance: MITAPIVAT
     Indication: Pyruvate kinase deficiency anaemia
     Dosage: 5 MILLIGRAM, BID
     Route: 048
     Dates: start: 20220524
  2. MITAPIVAT [Suspect]
     Active Substance: MITAPIVAT
     Dosage: 30 MILLIGRAM, BID
     Route: 048
     Dates: start: 20220616
  3. MITAPIVAT [Suspect]
     Active Substance: MITAPIVAT
     Dosage: 20 MILLIGRAM, QD
     Route: 048

REACTIONS (5)
  - Malaise [Unknown]
  - Fatigue [Unknown]
  - Haemoglobin decreased [Recovering/Resolving]
  - Blood creatinine increased [Not Recovered/Not Resolved]
  - Serum ferritin increased [Unknown]

NARRATIVE: CASE EVENT DATE: 20220713
